FAERS Safety Report 17740998 (Version 1)
Quarter: 2020Q2

REPORT INFORMATION
  Report Type: Report from Study
  Country: US (occurrence: US)
  Receive Date: 20200504
  Receipt Date: 20200504
  Transmission Date: 20200714
  Serious: Yes (Hospitalization)
  Sender: FDA-Public Use
  Company Number: US-MYLANLABS-2020M1042170

PATIENT
  Age: 57 Year
  Sex: Male

DRUGS (2)
  1. NICARDIPINE [Suspect]
     Active Substance: NICARDIPINE
     Indication: CEREBRAL VASOCONSTRICTION
     Dosage: 5 MILLIGRAM
     Route: 042
  2. HEPARIN [Concomitant]
     Active Substance: HEPARIN SODIUM
     Indication: PRODUCT USED FOR UNKNOWN INDICATION
     Route: 065

REACTIONS (1)
  - Drug ineffective [Unknown]
